FAERS Safety Report 14610308 (Version 1)
Quarter: 2018Q1

REPORT INFORMATION
  Report Type: Spontaneous
  Country: FR (occurrence: FR)
  Receive Date: 20180307
  Receipt Date: 20180307
  Transmission Date: 20180509
  Serious: Yes (Other)
  Sender: FDA-Public Use
  Company Number: FR-BAUSCH-BL-2018-005848

PATIENT
  Age: 66 Year
  Sex: Female

DRUGS (6)
  1. TILDIEM [Suspect]
     Active Substance: DILTIAZEM HYDROCHLORIDE
     Indication: TACHYCARDIA
     Route: 042
     Dates: start: 20141019, end: 20141019
  2. MONO-TILDIEM [Suspect]
     Active Substance: DILTIAZEM HYDROCHLORIDE
     Indication: TACHYCARDIA
     Route: 048
     Dates: start: 20141020, end: 20141025
  3. SERETIDE [Concomitant]
     Active Substance: FLUTICASONE PROPIONATE\SALMETEROL XINAFOATE
     Indication: PRODUCT USED FOR UNKNOWN INDICATION
  4. INFLUVAC [Concomitant]
     Active Substance: INFLUENZA VIRUS VACCINE
     Indication: PRODUCT USED FOR UNKNOWN INDICATION
     Dates: start: 20141023, end: 20141023
  5. LEFLUNOMIDE. [Concomitant]
     Active Substance: LEFLUNOMIDE
     Indication: PRODUCT USED FOR UNKNOWN INDICATION
     Dates: start: 2010, end: 201410
  6. ASPEGIC [Concomitant]
     Active Substance: ASPIRIN DL-LYSINE
     Indication: PRODUCT USED FOR UNKNOWN INDICATION
     Dates: start: 20141020, end: 20141025

REACTIONS (3)
  - Urticaria [Recovered/Resolved]
  - Pyrexia [Recovered/Resolved]
  - Erythema multiforme [Recovered/Resolved]

NARRATIVE: CASE EVENT DATE: 201410
